FAERS Safety Report 23321694 (Version 1)
Quarter: 2023Q4

REPORT INFORMATION
  Report Type: Report from Study
  Country: DE (occurrence: DE)
  Receive Date: 20231220
  Receipt Date: 20231220
  Transmission Date: 20240110
  Serious: Yes (Hospitalization)
  Sender: FDA-Public Use
  Company Number: DE-SANDOZ-SDZ2023DE060470

PATIENT
  Sex: Male

DRUGS (14)
  1. METHOTREXATE [Suspect]
     Active Substance: METHOTREXATE
     Indication: Product used for unknown indication
     Dosage: 15 MILLIGRAM
     Route: 065
     Dates: start: 20211004
  2. METHOTREXATE [Suspect]
     Active Substance: METHOTREXATE
     Dosage: 15 MILLIGRAM
     Route: 065
     Dates: start: 20201005
  3. METHOTREXATE [Suspect]
     Active Substance: METHOTREXATE
     Dosage: 10 MILLIGRAM
     Route: 065
     Dates: start: 20200719
  4. ACEMETACIN [Suspect]
     Active Substance: ACEMETACIN
     Indication: Product used for unknown indication
     Dosage: 180 MILLIGRAM
     Route: 065
     Dates: start: 20210331, end: 20210607
  5. ACEMETACIN [Suspect]
     Active Substance: ACEMETACIN
     Dosage: 90 MILLIGRAM
     Route: 065
     Dates: start: 20210215
  6. ACEMETACIN [Suspect]
     Active Substance: ACEMETACIN
     Dosage: 180 MILLIGRAM
     Route: 065
     Dates: start: 20210331, end: 20210719
  7. ADALIMUMAB [Suspect]
     Active Substance: ADALIMUMAB\ISOPROPYL ALCOHOL
     Indication: Product used for unknown indication
     Dosage: UNK
     Route: 065
  8. COSENTYX [Suspect]
     Active Substance: SECUKINUMAB
     Indication: Product used for unknown indication
     Dosage: 300 MILLIGRAM
     Route: 065
     Dates: start: 20210719
  9. COSENTYX [Suspect]
     Active Substance: SECUKINUMAB
     Dosage: 300 MILLIGRAM
     Route: 065
     Dates: start: 20210719, end: 20220101
  10. COSENTYX [Suspect]
     Active Substance: SECUKINUMAB
     Dosage: 150 MILLIGRAM
     Route: 065
     Dates: start: 20210331
  11. HYRIMOZ [Suspect]
     Active Substance: ADALIMUMAB-ADAZ
     Indication: Product used for unknown indication
     Dosage: 40 MILLIGRAM
     Route: 065
     Dates: start: 20221030
  12. INFLIXIMAB [Suspect]
     Active Substance: INFLIXIMAB
     Indication: Product used for unknown indication
     Dosage: 450 MILLIGRAM
     Route: 065
     Dates: start: 20221208
  13. DICLOFENAC [Suspect]
     Active Substance: DICLOFENAC
     Indication: Product used for unknown indication
     Dosage: 50 MILLIGRAM
     Route: 065
     Dates: start: 20210608
  14. DICLOFENAC [Suspect]
     Active Substance: DICLOFENAC
     Dosage: 100 MILLIGRAM
     Route: 065
     Dates: start: 20210608, end: 20220114

REACTIONS (3)
  - Axial spondyloarthritis [Unknown]
  - Foot deformity [Unknown]
  - Chest pain [Unknown]

NARRATIVE: CASE EVENT DATE: 20221009
